FAERS Safety Report 7201388-9 (Version None)
Quarter: 2010Q4

REPORT INFORMATION
  Report Type: 
  Country: None (occurrence: None)
  Receive Date: 20101216
  Receipt Date: 20101207
  Transmission Date: 20110411
  Serious: Yes (Other)
  Sender: FDA-Public Use
  Company Number: 2010SP063745

PATIENT
  Sex: Female

DRUGS (2)
  1. TEMOZOLOMIDE [Suspect]
     Indication: NEOPLASM
  2. RADIOTHERAPY [Concomitant]

REACTIONS (2)
  - BRAIN NEOPLASM [None]
  - DRUG INTOLERANCE [None]
